FAERS Safety Report 4325872-0 (Version None)
Quarter: 2004Q1

REPORT INFORMATION
  Report Type: 
  Country: None (occurrence: None)
  Receive Date: 20040329
  Receipt Date: 20040318
  Transmission Date: 20041129
  Serious: Yes (Other)
  Sender: FDA-Public Use
  Company Number: US-MERCK-0403USA01625

PATIENT
  Age: 48 Year
  Sex: Female

DRUGS (6)
  1. FIORICET TABLETS [Concomitant]
     Route: 065
  2. RHINOCORT [Concomitant]
     Route: 065
  3. ZYRTEC [Concomitant]
     Route: 065
  4. ADVAIR DISKUS 100/50 [Concomitant]
     Route: 065
  5. SINGULAIR [Suspect]
     Indication: ASTHMA
     Route: 048
     Dates: start: 20000101, end: 20010101
  6. SINGULAIR [Suspect]
     Route: 048
     Dates: start: 20010101

REACTIONS (3)
  - BLOOD CHOLESTEROL INCREASED [None]
  - PRESCRIBED OVERDOSE [None]
  - SINUS POLYP [None]
